FAERS Safety Report 9690656 (Version 1)
Quarter: 2013Q4

REPORT INFORMATION
  Report Type: Spontaneous
  Country: IN (occurrence: None)
  Receive Date: 20131113
  Receipt Date: 20131113
  Transmission Date: 20140711
  Serious: Yes (Other)
  Sender: FDA-Public Use
  Company Number: 2013MPI00703

PATIENT
  Age: 37 Year
  Sex: Male

DRUGS (1)
  1. ADCETRIS (BRENTUXIMAB VEDOTIN) INJECTION [Suspect]
     Indication: HODGKIN^S DISEASE
     Dosage: UNK
     Dates: start: 20130813, end: 20130903

REACTIONS (7)
  - Subdural haematoma [None]
  - Metastases to central nervous system [None]
  - Bacterial sepsis [None]
  - Neutropenia [None]
  - Vomiting [None]
  - Headache [None]
  - Dizziness [None]
